FAERS Safety Report 25334890 (Version 1)
Quarter: 2025Q2

REPORT INFORMATION
  Report Type: Spontaneous
  Country: US (occurrence: US)
  Receive Date: 20250520
  Receipt Date: 20250520
  Transmission Date: 20250716
  Serious: Yes (Death, Hospitalization, Other)
  Sender: SAMSUNG BIOEPIS
  Company Number: US-SAMSUNG BIOEPIS-SB-2025-16633

PATIENT
  Age: 61 Year
  Sex: Male

DRUGS (5)
  1. ADALIMUMAB [Suspect]
     Active Substance: ADALIMUMAB
     Indication: Cutaneous T-cell lymphoma
  2. METHOTREXATE [Suspect]
     Active Substance: METHOTREXATE
     Indication: Cutaneous T-cell lymphoma
  3. PREDNISONE [Suspect]
     Active Substance: PREDNISONE
     Indication: Cutaneous T-cell lymphoma
  4. DUPILUMAB [Suspect]
     Active Substance: DUPILUMAB
     Indication: Cutaneous T-cell lymphoma
  5. BRENTUXIMAB VEDOTIN [Suspect]
     Active Substance: BRENTUXIMAB VEDOTIN
     Indication: Cutaneous T-cell lymphoma

REACTIONS (11)
  - Cutaneous T-cell lymphoma [Fatal]
  - Renal failure [Unknown]
  - Blood lactic acid increased [Unknown]
  - Staphylococcal infection [Unknown]
  - Infection [Unknown]
  - Rash [Not Recovered/Not Resolved]
  - Hypoalbuminaemia [Unknown]
  - Hyperglycaemia [Unknown]
  - Electrolyte imbalance [Unknown]
  - Condition aggravated [Unknown]
  - Off label use [Unknown]
